FAERS Safety Report 4693984-8 (Version None)
Quarter: 2005Q2

REPORT INFORMATION
  Report Type: 
  Country: None (occurrence: None)
  Receive Date: 20050617
  Receipt Date: 20050311
  Transmission Date: 20051028
  Serious: Yes (Hospitalization)
  Sender: FDA-Public Use
  Company Number: US-MERCK-0503USA02632

PATIENT
  Age: 74 Year
  Sex: Female
  Weight: 89 kg

DRUGS (10)
  1. LISINOPRIL [Concomitant]
     Route: 048
  2. LEXAPRO [Concomitant]
     Route: 065
  3. DETROL [Concomitant]
     Route: 065
  4. VIOXX [Suspect]
     Indication: ARTHRITIS
     Route: 048
     Dates: start: 20040501, end: 20041101
  5. EXELON [Concomitant]
     Route: 048
  6. LOTREL [Concomitant]
     Route: 048
  7. BEXTRA [Concomitant]
     Route: 065
  8. OXYBUTYNIN [Concomitant]
     Route: 048
  9. AGGRENOX [Concomitant]
     Route: 065
  10. NORVASC [Concomitant]
     Route: 065

REACTIONS (10)
  - CEREBRAL INFARCTION [None]
  - CONSTIPATION [None]
  - DEHYDRATION [None]
  - DEPRESSION [None]
  - FALL [None]
  - MUSCLE SPASMS [None]
  - RENAL FAILURE [None]
  - URINARY TRACT INFECTION [None]
  - VAGINAL CANDIDIASIS [None]
  - VENOUS INSUFFICIENCY [None]
